FAERS Safety Report 9176579 (Version 1)
Quarter: 2013Q1

REPORT INFORMATION
  Report Type: Spontaneous
  Country: US (occurrence: None)
  Receive Date: 20130320
  Receipt Date: 20130320
  Transmission Date: 20140127
  Serious: Yes (Hospitalization, Other)
  Sender: FDA-Public Use
  Company Number: None

PATIENT
  Age: 59 Year
  Sex: Male
  Weight: 86.18 kg

DRUGS (1)
  1. AZITHROMYCIN [Suspect]
     Dosage: 2 TABLETS AT ONCE THEN 1 TAB FOR 4 DAYS PO
     Dates: start: 20130122, end: 20130122

REACTIONS (1)
  - Atrial fibrillation [None]
